FAERS Safety Report 24312876 (Version 1)
Quarter: 2024Q3

REPORT INFORMATION
  Report Type: Spontaneous
  Country: JP (occurrence: JP)
  Receive Date: 20240912
  Receipt Date: 20240912
  Transmission Date: 20241016
  Serious: Yes (Other)
  Sender: Visiox
  Company Number: JP-SANTEN-2024-AER-00380

PATIENT
  Age: 71 Year

DRUGS (3)
  1. OMIDENEPAG ISOPROPYL [Suspect]
     Active Substance: OMIDENEPAG ISOPROPYL
     Indication: Glaucoma
     Dosage: 1 DROP ONCE A DAY FOR BOTH EYES (1 GTT, 1 IN 1 D)
     Route: 047
     Dates: start: 20220907, end: 20240604
  2. TAFLUPROST [Suspect]
     Active Substance: TAFLUPROST
     Indication: Glaucoma
     Dosage: 1 DROP ONCE A DAY FOR BOTH EYES (1 GTT,1 IN 1 D)
     Route: 047
     Dates: start: 20240607, end: 20240822
  3. TIMOLOL [Concomitant]
     Active Substance: TIMOLOL
     Indication: Glaucoma
     Dosage: 1 DROP TWICE A DAY FOR BOTH EYES (1 GTT, 2 IN 1 D)
     Route: 047
     Dates: start: 20240822

REACTIONS (2)
  - Cataract [Unknown]
  - Refraction disorder [Not Recovered/Not Resolved]

NARRATIVE: CASE EVENT DATE: 20240604
